FAERS Safety Report 6537446-1 (Version None)
Quarter: 2010Q1

REPORT INFORMATION
  Report Type: 
  Country: None (occurrence: None)
  Receive Date: 20100114
  Receipt Date: 20100105
  Transmission Date: 20100710
  Serious: Yes (Hospitalization)
  Sender: FDA-Public Use
  Company Number: PHHY2010US00833

PATIENT
  Age: 93 Year
  Sex: Female
  Weight: 110 kg

DRUGS (2)
  1. RECLAST [Suspect]
     Indication: OSTEOPOROSIS
     Dosage: 5 MG, UNK
     Route: 042
     Dates: start: 20091231, end: 20091231
  2. LIDOCAINE [Concomitant]

REACTIONS (6)
  - BLOOD PRESSURE INCREASED [None]
  - DISORIENTATION [None]
  - HEADACHE [None]
  - HEART RATE IRREGULAR [None]
  - PALPITATIONS [None]
  - SENSATION OF PRESSURE [None]
